FAERS Safety Report 21191366 (Version 1)
Quarter: 2022Q3

REPORT INFORMATION
  Report Type: Spontaneous
  Country: US (occurrence: US)
  Receive Date: 20220809
  Receipt Date: 20220809
  Transmission Date: 20221027
  Serious: No
  Sender: FDA-Public Use
  Company Number: US-PFIZER INC-202101655563

PATIENT
  Age: 66 Year
  Sex: Male

DRUGS (1)
  1. EUCRISA [Suspect]
     Active Substance: CRISABOROLE
     Indication: Rash
     Dosage: UNK , 2X/DAY (APPLY TWICE DAILY TO CHEST AREA, 60 G)
     Route: 061

REACTIONS (3)
  - Off label use [Unknown]
  - Intentional product misuse [Unknown]
  - Therapeutic product effect incomplete [Unknown]
